FAERS Safety Report 24308024 (Version 4)
Quarter: 2024Q4

REPORT INFORMATION
  Report Type: Report from Study
  Country: US (occurrence: US)
  Receive Date: 20240911
  Receipt Date: 20241112
  Transmission Date: 20250115
  Serious: No
  Sender: SUNOVION
  Company Number: US-SUMITOMO PHARMA SWITZERLAND GMBH-2024SPA001792

PATIENT

DRUGS (2)
  1. ORGOVYX [Suspect]
     Active Substance: RELUGOLIX
     Indication: Prostate cancer
     Dosage: 360 MG, SINGLE
     Route: 048
     Dates: start: 20240731, end: 20240731
  2. ORGOVYX [Suspect]
     Active Substance: RELUGOLIX
     Dosage: 120 MG, QD
     Route: 048
     Dates: start: 20240801

REACTIONS (9)
  - Decreased appetite [Recovering/Resolving]
  - Early satiety [Unknown]
  - Mood altered [Unknown]
  - Apathy [Unknown]
  - Abnormal dreams [Unknown]
  - Fatigue [Unknown]
  - Insomnia [Not Recovered/Not Resolved]
  - Asthenia [Unknown]
  - Headache [Unknown]
